FAERS Safety Report 25605862 (Version 2)
Quarter: 2025Q4

REPORT INFORMATION
  Report Type: Spontaneous
  Country: EU (occurrence: EU)
  Receive Date: 20250725
  Receipt Date: 20251119
  Transmission Date: 20260117
  Serious: Yes (Hospitalization, Other)
  Sender: AUROBINDO
  Company Number: EU-AFSSAPS-SE2025000620

PATIENT
  Age: 64 Year
  Sex: Female
  Weight: 42 kg

DRUGS (5)
  1. MIRTAZAPINE [Suspect]
     Active Substance: MIRTAZAPINE
     Indication: Depression
     Dosage: 15 MILLIGRAM, ONCE A DAY
     Dates: start: 20250625, end: 20250701
  2. VENLAFAXINE HYDROCHLORIDE [Concomitant]
     Active Substance: VENLAFAXINE HYDROCHLORIDE
     Indication: Depression
     Dosage: 225 MILLIGRAM, ONCE A DAY
     Dates: start: 202502, end: 20250525
  3. VENLAFAXINE HYDROCHLORIDE [Concomitant]
     Active Substance: VENLAFAXINE HYDROCHLORIDE
     Dosage: 300 MILLIGRAM, ONCE A DAY
     Dates: start: 20250526
  4. LORAZEPAM [Concomitant]
     Active Substance: LORAZEPAM
     Indication: Depression
     Dosage: 10 MILLIGRAM, ONCE A DAY
     Dates: start: 20250516
  5. RACECADOTRIL ARROW 100 mg, g?lule [Concomitant]
     Indication: Diarrhoea
     Dosage: 100 MILLIGRAM, ONCE A DAY (100 ? 300 MG/J)
     Dates: start: 20250627

REACTIONS (1)
  - Hepatocellular injury [Recovered/Resolved]

NARRATIVE: CASE EVENT DATE: 20250630
